FAERS Safety Report 4582574-3 (Version None)
Quarter: 2005Q1

REPORT INFORMATION
  Report Type: 
  Country: None (occurrence: None)
  Receive Date: 20050215
  Receipt Date: 20040324
  Transmission Date: 20050727
  Serious: Yes (Death)
  Sender: FDA-Public Use
  Company Number: 200412458US

PATIENT
  Age: 49 Year
  Sex: Female

DRUGS (1)
  1. LOVENOX [Suspect]
     Dates: end: 20040216

REACTIONS (5)
  - BLOOD UREA INCREASED [None]
  - CEREBRAL PALSY [None]
  - PNEUMONIA ASPIRATION [None]
  - RESPIRATORY ARREST [None]
  - SUDDEN DEATH [None]
